FAERS Safety Report 21840557 (Version 1)
Quarter: 2023Q1

REPORT INFORMATION
  Report Type: Spontaneous
  Country: None (occurrence: US)
  Receive Date: 20230110
  Receipt Date: 20230110
  Transmission Date: 20230418
  Serious: No
  Sender: FDA-Public Use
  Company Number: US-Ajanta Pharma USA Inc.-2136549

PATIENT
  Age: 69 Year
  Sex: Female
  Weight: 73.636 kg

DRUGS (3)
  1. CHOLESTYRAMINE [Suspect]
     Active Substance: CHOLESTYRAMINE
     Indication: Diarrhoea
     Route: 048
     Dates: start: 20211217, end: 20220916
  2. METFORMIN [Concomitant]
     Active Substance: METFORMIN HYDROCHLORIDE
  3. Centrum Adult Multivitamin [Concomitant]

REACTIONS (11)
  - Drug ineffective for unapproved indication [Recovered/Resolved]
  - Abdominal pain upper [Recovered/Resolved]
  - Abnormal faeces [Recovering/Resolving]
  - Diarrhoea [Recovering/Resolving]
  - Product solubility abnormal [Recovered/Resolved]
  - Product physical consistency issue [Recovered/Resolved]
  - Product deposit [Recovered/Resolved]
  - Toothache [Recovered/Resolved]
  - Pain in jaw [Recovered/Resolved]
  - Tongue discomfort [Recovered/Resolved]
  - Insomnia [Recovered/Resolved]

NARRATIVE: CASE EVENT DATE: 20211201
